FAERS Safety Report 21008824 (Version 1)
Quarter: 2022Q2

REPORT INFORMATION
  Report Type: Spontaneous
  Country: US (occurrence: None)
  Receive Date: 20220625
  Receipt Date: 20220625
  Transmission Date: 20220721
  Serious: No
  Sender: FDA-Public Use
  Company Number: None

PATIENT
  Age: 34 Year
  Sex: Female
  Weight: 127.8 kg

DRUGS (8)
  1. PAXLOVID [Suspect]
     Active Substance: NIRMATRELVIR\RITONAVIR
     Indication: COVID-19
     Dosage: OTHER QUANTITY : 3 TABLET(S);?FREQUENCY : TWICE A DAY;?
     Route: 048
     Dates: start: 20220616, end: 20220616
  2. GABAPENTIN [Concomitant]
  3. ALBUTEROL [Concomitant]
  4. SYMBICORT [Concomitant]
     Active Substance: BUDESONIDE\FORMOTEROL FUMARATE DIHYDRATE
  5. FLUOXETINE [Concomitant]
  6. DEXTROAMPHETAMINE-AMPHETAMINE [Concomitant]
  7. PROMETHAZINE [Concomitant]
  8. NORETHINDRONE [Concomitant]

REACTIONS (4)
  - Diarrhoea [None]
  - Vomiting projectile [None]
  - Dyspepsia [None]
  - Abdominal pain upper [None]

NARRATIVE: CASE EVENT DATE: 20220616
